FAERS Safety Report 10262316 (Version 1)
Quarter: 2014Q2

REPORT INFORMATION
  Report Type: Spontaneous
  Country: US (occurrence: US)
  Receive Date: 20140626
  Receipt Date: 20140626
  Transmission Date: 20141212
  Serious: No
  Sender: FDA-Public Use
  Company Number: US-PFIZER INC-2014172860

PATIENT
  Age: 46 Year
  Sex: Female
  Weight: 92.06 kg

DRUGS (11)
  1. LYRICA [Suspect]
     Indication: BRACHIAL PLEXOPATHY
     Dosage: 75 MG, 2X/DAY
     Route: 048
     Dates: start: 200911
  2. GABAPENTIN [Concomitant]
     Dosage: 900 MG, 4X/DAY
  3. NORTRIPTYLINE [Concomitant]
     Dosage: 50 MG, 1X/DAY (AT BED TIME)
  4. METFORMIN [Concomitant]
     Dosage: 1000 MG (BY TAKING TWO 500MG), 2X/DAY
  5. ESCITALOPRAM [Concomitant]
     Dosage: 10 MG, 1X/DAY
  6. SIMVASTATIN [Concomitant]
     Dosage: 20 MG (AT NOON), 1X/DAY
  7. IBUPROFEN [Concomitant]
     Dosage: 600 MG, 1X/DAY (AT NOON)
  8. ACETAMINOPHEN/HYDROCODONE [Concomitant]
     Dosage: 5/325 MG, 2X/DAY (BY TAKING ONE EVERY 12 HOURS)
  9. LEVEMIR [Concomitant]
     Dosage: 30 UNIT, 1X/DAY
  10. VICTOZA [Concomitant]
     Dosage: 1.8 MG, 1X/DAY
  11. LANSOPRAZOLE [Concomitant]
     Dosage: 30 MG, 1X/DAY (AT DINNER)

REACTIONS (3)
  - Off label use [Unknown]
  - Muscle twitching [Unknown]
  - Tremor [Unknown]
